FAERS Safety Report 5716968-7 (Version None)
Quarter: 2008Q2

REPORT INFORMATION
  Report Type: 
  Country: None (occurrence: None)
  Receive Date: 20080424
  Receipt Date: 20080415
  Transmission Date: 20081010
  Serious: Yes (Hospitalization, Disabling, Other)
  Sender: FDA-Public Use
  Company Number: US-MERCK-0802USA06380

PATIENT
  Age: 90 Year
  Sex: Female

DRUGS (9)
  1. FOSAMAX [Suspect]
     Indication: OSTEOPOROSIS
     Route: 048
     Dates: start: 20070401, end: 20070101
  2. FOSAMAX [Suspect]
     Route: 048
     Dates: start: 20070101
  3. SYNTHROID [Concomitant]
     Route: 065
  4. REMERON [Concomitant]
     Route: 065
  5. PAXIL [Concomitant]
     Route: 065
  6. ZANTAC [Concomitant]
     Route: 065
  7. OS-CAL D [Concomitant]
     Route: 065
  8. BOOST [Concomitant]
     Route: 065
  9. TYLENOL [Concomitant]
     Route: 065

REACTIONS (3)
  - BLOOD SODIUM DECREASED [None]
  - HIP FRACTURE [None]
  - TOOTH DISORDER [None]
